FAERS Safety Report 5247796-7 (Version None)
Quarter: 2007Q1

REPORT INFORMATION
  Report Type: 
  Country: None (occurrence: None)
  Receive Date: 20061201
  Receipt Date: 20060814
  Transmission Date: 20070707
  Serious: No
  Sender: FDA-Public Use
  Company Number: 2006PV019434

PATIENT
  Age: 66 Year
  Sex: Male

DRUGS (2)
  1. BYETTA [Suspect]
     Indication: DIABETES MELLITUS NON-INSULIN-DEPENDENT
     Dosage: 10 MCG; BID; SC
     Route: 058
     Dates: start: 20060201
  2. FLONASE [Concomitant]

REACTIONS (3)
  - CONSTIPATION [None]
  - NASAL CONGESTION [None]
  - NASOPHARYNGITIS [None]
